FAERS Safety Report 7481681-5 (Version None)
Quarter: 2011Q2

REPORT INFORMATION
  Report Type: 
  Country: None (occurrence: None)
  Receive Date: 20110516
  Receipt Date: 20110505
  Transmission Date: 20111010
  Serious: Yes (Hospitalization, Other)
  Sender: FDA-Public Use
  Company Number: US-ASTRAZENECA-2011SE20809

PATIENT
  Age: 59 Year
  Sex: Female

DRUGS (2)
  1. NEXIUM [Suspect]
     Route: 048
  2. CRESTOR [Suspect]

REACTIONS (12)
  - DRUG DOSE OMISSION [None]
  - MYOCARDIAL INFARCTION [None]
  - CATHETERISATION CARDIAC [None]
  - GASTROOESOPHAGEAL REFLUX DISEASE [None]
  - CORONARY ARTERY BYPASS [None]
  - CORONARY ARTERY OCCLUSION [None]
  - OESOPHAGEAL SPASM [None]
  - DYSPEPSIA [None]
  - COMA [None]
  - PNEUMONIA [None]
  - ARTERY DISSECTION [None]
  - CARDIAC DISORDER [None]
